FAERS Safety Report 14635606 (Version 1)
Quarter: 2018Q1

REPORT INFORMATION
  Report Type: Report from Study
  Country: CN (occurrence: CN)
  Receive Date: 20180314
  Receipt Date: 20180314
  Transmission Date: 20180509
  Serious: Yes (Hospitalization, Other)
  Sender: FDA-Public Use
  Company Number: CN-BAYER-2018-004533

PATIENT
  Age: 73 Year
  Sex: Female

DRUGS (2)
  1. STIVARGA [Suspect]
     Active Substance: REGORAFENIB
     Indication: GASTROINTESTINAL CARCINOMA
     Dosage: 80 MG, QD
     Route: 048
     Dates: start: 20180105, end: 20180131
  2. STIVARGA [Suspect]
     Active Substance: REGORAFENIB
     Indication: GASTROINTESTINAL CARCINOMA
     Dosage: 80 MG, QD
     Route: 048

REACTIONS (17)
  - Hospitalisation [None]
  - Palmar-plantar erythrodysaesthesia syndrome [Recovering/Resolving]
  - Blister [Recovering/Resolving]
  - Palmar-plantar erythrodysaesthesia syndrome [Recovering/Resolving]
  - Ascites [Not Recovered/Not Resolved]
  - Decreased appetite [Not Recovered/Not Resolved]
  - Swelling face [Recovering/Resolving]
  - Blood pressure increased [Recovering/Resolving]
  - Pain in extremity [Recovering/Resolving]
  - Erythema [Recovering/Resolving]
  - Peripheral swelling [Recovering/Resolving]
  - Dysphonia [Recovering/Resolving]
  - Pain in extremity [None]
  - Palmar-plantar erythrodysaesthesia syndrome [Recovering/Resolving]
  - Haematochezia [Not Recovered/Not Resolved]
  - Abdominal pain upper [Recovering/Resolving]
  - Skin ulcer [None]

NARRATIVE: CASE EVENT DATE: 2018
